FAERS Safety Report 18483195 (Version 1)
Quarter: 2020Q4

REPORT INFORMATION
  Report Type: Spontaneous
  Country: US (occurrence: US)
  Receive Date: 20201109
  Receipt Date: 20201109
  Transmission Date: 20210114
  Serious: No
  Sender: FDA-Public Use
  Company Number: US-ROCHE-2403583

PATIENT
  Sex: Female

DRUGS (16)
  1. ASPIRIN 81 [Concomitant]
     Active Substance: ASPIRIN
  2. FLONASE [Concomitant]
     Active Substance: FLUTICASONE PROPIONATE
  3. SILDENAFIL. [Concomitant]
     Active Substance: SILDENAFIL
  4. ALBUTEROL SULFATE. [Concomitant]
     Active Substance: ALBUTEROL SULFATE
  5. SENOKOT [Concomitant]
     Active Substance: SENNOSIDES
  6. SODIUM CHLORIDE. [Concomitant]
     Active Substance: SODIUM CHLORIDE
  7. DIURIL (UNITED STATES) [Concomitant]
  8. MOMETASONE FUROATE. [Concomitant]
     Active Substance: MOMETASONE FUROATE
  9. PROTONIX [Concomitant]
     Active Substance: PANTOPRAZOLE SODIUM
  10. VASOTEC [Concomitant]
     Active Substance: ENALAPRIL MALEATE
  11. PULMOZYME [Suspect]
     Active Substance: DORNASE ALFA
     Indication: LOWER RESPIRATORY TRACT INFECTION
  12. SINGULAIR [Concomitant]
     Active Substance: MONTELUKAST SODIUM
  13. PULMOZYME [Suspect]
     Active Substance: DORNASE ALFA
     Indication: BRONCHIECTASIS
     Dosage: ONGOING: YES
     Route: 045
     Dates: start: 20190222
  14. AMOXICILLIN. [Concomitant]
     Active Substance: AMOXICILLIN
  15. LOVENOX [Concomitant]
     Active Substance: ENOXAPARIN SODIUM
  16. FUROSEMIDE. [Concomitant]
     Active Substance: FUROSEMIDE

REACTIONS (2)
  - Drug ineffective [Unknown]
  - No adverse event [Unknown]
